FAERS Safety Report 6329534-X (Version None)
Quarter: 2009Q3

REPORT INFORMATION
  Report Type: 
  Country: None (occurrence: None)
  Receive Date: 20090826
  Receipt Date: 20090819
  Transmission Date: 20100115
  Serious: Yes (Hospitalization)
  Sender: FDA-Public Use
  Company Number: US-ELI_LILLY_AND_COMPANY-US200908004073

PATIENT
  Sex: Female

DRUGS (3)
  1. HUMULIN N [Suspect]
     Dosage: 70 U, EACH MORNING
  2. HUMULIN N [Suspect]
     Dosage: 60 U, EACH EVENING
  3. HUMAN INSULIN (RDNA ORIGIN) [Suspect]

REACTIONS (3)
  - IMPAIRED DRIVING ABILITY [None]
  - NEPHROLITHIASIS [None]
  - VISUAL ACUITY REDUCED [None]
